FAERS Safety Report 9927324 (Version 3)
Quarter: 2015Q2

REPORT INFORMATION
  Report Type: Report from Study
  Country: CZ (occurrence: CZ)
  Receive Date: 20140226
  Receipt Date: 20150616
  Transmission Date: 20150821
  Serious: Yes (Other)
  Sender: FDA-Public Use
  Company Number: PHHY2014CZ022083

PATIENT
  Age: 57 Year
  Sex: Male

DRUGS (8)
  1. PRENEWEL [Concomitant]
     Indication: HYPERTENSION
     Route: 048
     Dates: start: 20130213
  2. APO OME [Concomitant]
     Indication: PROPHYLAXIS
     Dosage: 20 MG,1-0-0 EVERY OTHER DAY
     Route: 048
     Dates: start: 20050922, end: 20130313
  3. WARFARIN [Concomitant]
     Active Substance: WARFARIN
     Dosage: 2.5 MG, UNK
     Route: 048
     Dates: start: 20040512
  4. MEDROL [Concomitant]
     Active Substance: METHYLPREDNISOLONE
     Indication: MULTIPLE SCLEROSIS
     Dosage: 8 MG,1-0-0 EVERY OTHER DAY
     Route: 048
     Dates: start: 20050922, end: 20130313
  5. WARFARIN [Concomitant]
     Active Substance: WARFARIN
     Indication: EMBOLISM
     Dosage: 1.5 MG, UNK
     Route: 048
     Dates: start: 20040512
  6. VITAMIN C [Concomitant]
     Active Substance: ASCORBIC ACID
     Indication: EMBOLISM
     Dosage: 100 MG, 1-0-0
     Route: 048
     Dates: start: 20090402
  7. GILENYA [Suspect]
     Active Substance: FINGOLIMOD HYDROCHLORIDE
     Indication: MULTIPLE SCLEROSIS
     Dosage: 0.5 MG, QD
     Route: 048
     Dates: start: 20130220, end: 20130919
  8. KALIUM CHLORATUM [Concomitant]
     Active Substance: POTASSIUM CHLORIDE
     Indication: PROPHYLAXIS
     Dosage: 500 MG, 1-0-0 EVERY OTHER DAY
     Route: 048
     Dates: start: 20050922, end: 20130313

REACTIONS (4)
  - Liver disorder [Recovered/Resolved]
  - Lymphocyte count decreased [Unknown]
  - Myalgia [Not Recovered/Not Resolved]
  - Hepatic enzyme increased [Recovered/Resolved]

NARRATIVE: CASE EVENT DATE: 20130509
